FAERS Safety Report 17283940 (Version 1)
Quarter: 2020Q1

REPORT INFORMATION
  Report Type: Spontaneous
  Country: US (occurrence: US)
  Receive Date: 20200117
  Receipt Date: 20200117
  Transmission Date: 20200409
  Serious: Yes (Hospitalization)
  Sender: FDA-Public Use
  Company Number: US-JUBILANT CADISTA PHARMACEUTICALS-2020JUB00013

PATIENT
  Age: 82 Year
  Sex: Female

DRUGS (2)
  1. LEVOFLOXACIN. [Suspect]
     Active Substance: LEVOFLOXACIN
     Route: 065
  2. THEOPHYLLINE [Suspect]
     Active Substance: THEOPHYLLINE ANHYDROUS
     Route: 065

REACTIONS (6)
  - Drug interaction [Unknown]
  - Hypokalaemia [Unknown]
  - Hypotension [Unknown]
  - Atrial fibrillation [Unknown]
  - Toxicity to various agents [Unknown]
  - Tremor [Unknown]
